FAERS Safety Report 19593801 (Version 4)
Quarter: 2021Q3

REPORT INFORMATION
  Report Type: Report from Study
  Country: CN (occurrence: CN)
  Receive Date: 20210722
  Receipt Date: 20210901
  Transmission Date: 20211014
  Serious: Yes (Hospitalization)
  Sender: FDA-Public Use
  Company Number: NVSC2021CN156995

PATIENT
  Sex: Female
  Weight: 63 kg

DRUGS (15)
  1. ABEMACICLIB [Suspect]
     Active Substance: ABEMACICLIB
     Dosage: 100 MG, BID
     Route: 048
     Dates: start: 20181130, end: 20181204
  2. ESTAZOLAM. [Concomitant]
     Active Substance: ESTAZOLAM
     Indication: INSOMNIA
     Dosage: UNK
     Route: 065
     Dates: start: 2015
  3. CALCIUM CARBONATE WITH D3 [Concomitant]
     Active Substance: CALCIUM CARBONATE\CHOLECALCIFEROL
     Indication: PRODUCT USED FOR UNKNOWN INDICATION
     Dosage: UNK
     Route: 065
     Dates: start: 20181121
  4. VITAMIN B [Concomitant]
     Active Substance: VITAMIN B
     Indication: PROPHYLAXIS
     Dosage: UNK
     Route: 065
     Dates: start: 20200305
  5. LETROZOLE. [Suspect]
     Active Substance: LETROZOLE
     Dosage: 2.5 MG, QD
     Route: 048
     Dates: start: 20181121
  6. TELMISARTAN. [Concomitant]
     Active Substance: TELMISARTAN
     Indication: HYPERTENSION
     Dosage: UNK
     Route: 065
     Dates: start: 20190606
  7. LETROZOLE. [Suspect]
     Active Substance: LETROZOLE
     Indication: INVASIVE DUCTAL BREAST CARCINOMA
     Dosage: 2.5 MG, QD
     Route: 048
     Dates: start: 20181121, end: 20201118
  8. ABEMACICLIB [Suspect]
     Active Substance: ABEMACICLIB
     Indication: INVASIVE DUCTAL BREAST CARCINOMA
     Dosage: 150 MG, BID
     Route: 048
     Dates: start: 20181121, end: 20181129
  9. ABEMACICLIB [Suspect]
     Active Substance: ABEMACICLIB
     Dosage: 150 MG, BID
     Route: 048
     Dates: start: 20181121, end: 20181217
  10. SPIRONOLACTON [Concomitant]
     Active Substance: SPIRONOLACTONE
     Indication: HYPERTENSION
     Dosage: UNK
     Route: 065
     Dates: start: 2016
  11. FUROSEMIDE. [Concomitant]
     Active Substance: FUROSEMIDE
     Indication: HYPERTENSION
     Dosage: UNK
     Route: 065
     Dates: start: 2016
  12. TRIMETAZIDINE [Concomitant]
     Active Substance: TRIMETAZIDINE
     Indication: CORONARY ARTERY DISEASE
     Dosage: UNK
     Route: 065
     Dates: start: 2016
  13. LETROZOLE. [Suspect]
     Active Substance: LETROZOLE
     Dosage: 2.5 MG, QD
     Route: 048
     Dates: start: 20201119, end: 20210718
  14. ABEMACICLIB [Suspect]
     Active Substance: ABEMACICLIB
     Dosage: 50 MG, BID
     Route: 048
     Dates: start: 20181214, end: 20181217
  15. BISOPROLOL FUMARATE. [Concomitant]
     Active Substance: BISOPROLOL FUMARATE
     Indication: CORONARY ARTERY DISEASE
     Dosage: UNK
     Route: 065
     Dates: start: 2016

REACTIONS (16)
  - Spondylolisthesis [Recovering/Resolving]
  - Diarrhoea [Recovered/Resolved]
  - Conjunctivitis [Unknown]
  - Ligament sprain [Unknown]
  - Back pain [Recovering/Resolving]
  - Fatigue [Unknown]
  - Dizziness [Unknown]
  - Pain [Recovering/Resolving]
  - Constipation [Unknown]
  - Intervertebral disc protrusion [Recovering/Resolving]
  - Chills [Unknown]
  - Goitre [Unknown]
  - Facial nerve disorder [Unknown]
  - Hot flush [Unknown]
  - Arthralgia [Unknown]
  - Myalgia [Unknown]

NARRATIVE: CASE EVENT DATE: 20181215
